FAERS Safety Report 9961622 (Version 1)
Quarter: 2014Q1

REPORT INFORMATION
  Report Type: Report from Study
  Country: US (occurrence: US)
  Receive Date: 20140305
  Receipt Date: 20140305
  Transmission Date: 20141002
  Serious: Yes (Other)
  Sender: FDA-Public Use
  Company Number: US-ABBVIE-13P-163-1112767-00

PATIENT
  Sex: Female

DRUGS (1)
  1. HUMIRA [Suspect]
     Indication: RHEUMATOID ARTHRITIS
     Route: 058
     Dates: start: 201211

REACTIONS (6)
  - Infection [Unknown]
  - Infection [Unknown]
  - Miliaria [Unknown]
  - Ingrown hair [Unknown]
  - Sinusitis [Unknown]
  - Bronchitis [Unknown]
